FAERS Safety Report 8538138-X (Version None)
Quarter: 2012Q3

REPORT INFORMATION
  Report Type: 
  Country: None (occurrence: None)
  Receive Date: 20120726
  Receipt Date: 20120716
  Transmission Date: 20120928
  Serious: No
  Sender: FDA-Public Use
  Company Number: US-009507513-1207USA005292

PATIENT

DRUGS (6)
  1. COZAAR [Suspect]
     Indication: HYPERTENSION
     Dosage: 50 MG, QD
     Route: 048
     Dates: start: 20120501, end: 20120101
  2. ALBUTEROL [Concomitant]
  3. GLYBURIDE [Concomitant]
  4. COZAAR [Suspect]
     Dosage: 50 MG, QD
     Route: 048
     Dates: start: 20120101, end: 20120101
  5. ATENOLOL [Concomitant]
  6. COZAAR [Suspect]
     Dosage: 50 MG, QD
     Route: 048
     Dates: start: 20120101, end: 20120101

REACTIONS (5)
  - VOMITING [None]
  - INFLUENZA LIKE ILLNESS [None]
  - DIZZINESS [None]
  - NAUSEA [None]
  - FEELING HOT [None]
